FAERS Safety Report 23039351 (Version 1)
Quarter: 2023Q4

REPORT INFORMATION
  Report Type: Spontaneous
  Country: US (occurrence: US)
  Receive Date: 20231006
  Receipt Date: 20231006
  Transmission Date: 20240109
  Serious: Yes (Hospitalization)
  Sender: FDA-Public Use
  Company Number: US-INDIVIOR EUROPE LIMITED-INDV-138673-2023

PATIENT
  Sex: Male

DRUGS (4)
  1. SUBLOCADE [Suspect]
     Active Substance: BUPRENORPHINE
     Indication: Drug dependence
     Dosage: 300 MILLIGRAM, QMO
     Route: 058
     Dates: start: 20221021
  2. SUBLOCADE [Suspect]
     Active Substance: BUPRENORPHINE
     Indication: Drug dependence
     Dosage: 100 MILLIGRAM, QMO
     Route: 058
     Dates: start: 2022
  3. SUBLOCADE [Suspect]
     Active Substance: BUPRENORPHINE
     Dosage: 100 MILLIGRAM, QMO
     Route: 058
     Dates: start: 20230309
  4. BUPRENORPHINE [Suspect]
     Active Substance: BUPRENORPHINE
     Indication: Drug dependence
     Dosage: UNK
     Route: 065
     Dates: start: 2020

REACTIONS (3)
  - Drug detoxification [Unknown]
  - Butterfly rash [Not Recovered/Not Resolved]
  - Dysphagia [Unknown]

NARRATIVE: CASE EVENT DATE: 20200101
